FAERS Safety Report 7971560-9 (Version None)
Quarter: 2011Q4

REPORT INFORMATION
  Report Type: 
  Country: None (occurrence: None)
  Receive Date: 20111212
  Receipt Date: 20111128
  Transmission Date: 20120403
  Serious: Yes (Hospitalization)
  Sender: FDA-Public Use
  Company Number: US-ENDO PHARMACEUTICALS INC.-OPER20110243

PATIENT
  Sex: Male
  Weight: 136.2 kg

DRUGS (1)
  1. OPANA ER [Suspect]
     Indication: PAIN
     Route: 048
     Dates: start: 20110916, end: 20110919

REACTIONS (5)
  - DISABILITY [None]
  - LETHARGY [None]
  - ABNORMAL BEHAVIOUR [None]
  - DISORIENTATION [None]
  - CONFUSIONAL STATE [None]
